FAERS Safety Report 23932110 (Version 2)
Quarter: 2024Q2

REPORT INFORMATION
  Report Type: Spontaneous
  Country: JP (occurrence: JP)
  Receive Date: 20240603
  Receipt Date: 20240611
  Transmission Date: 20240715
  Serious: Yes (Death, Life-Threatening, Hospitalization, Other)
  Sender: FDA-Public Use
  Company Number: JP-Accord-427395

PATIENT
  Age: 3 Decade
  Sex: Female
  Weight: 41 kg

DRUGS (3)
  1. LACOSAMIDE [Suspect]
     Active Substance: LACOSAMIDE
     Dosage: 63 LACOSAMIDE (50 MG) TABLETS
  2. MIRTAZAPINE [Suspect]
     Active Substance: MIRTAZAPINE
     Dosage: 60 MIRTAZAPINE (15 MG) TABLETS.
  3. LEVETIRACETAM [Concomitant]
     Active Substance: LEVETIRACETAM

REACTIONS (3)
  - Toxicity to various agents [Fatal]
  - Suicide attempt [Fatal]
  - Overdose [Fatal]
